FAERS Safety Report 4896885-5 (Version None)
Quarter: 2006Q1

REPORT INFORMATION
  Report Type: 
  Country: None (occurrence: None)
  Receive Date: 20060126
  Receipt Date: 20060124
  Transmission Date: 20060701
  Serious: Yes (Hospitalization)
  Sender: FDA-Public Use
  Company Number: TCI2006A00240

PATIENT
  Age: 44 Year
  Sex: Male

DRUGS (5)
  1. LANSOPRAZOLE [Suspect]
     Indication: STOMACH DISCOMFORT
     Dosage: 15 MG PER ORAL
     Route: 048
     Dates: start: 20060116, end: 20060116
  2. PL (PL GRAN.) (GRANULATE) [Suspect]
     Indication: NASOPHARYNGITIS
     Dosage: PER ORAL
     Route: 048
     Dates: start: 20060113
  3. RESPLEN (EPRAZINONE HYDROCHLORIDE) (PREPARATION FOR ORAL US (NOS) ) [Suspect]
     Indication: NASOPHARYNGITIS
     Dosage: PER ORAL
     Dates: start: 20060113
  4. AZUNOL (AZULENE SODIUM SULFONATE) [Suspect]
     Indication: NASOPHARYNGITIS
     Dates: start: 20060113
  5. SELBEX (TEPRENONE) (CAPSULES) [Concomitant]

REACTIONS (3)
  - GENERALISED ERYTHEMA [None]
  - OCULAR HYPERAEMIA [None]
  - RASH GENERALISED [None]
